FAERS Safety Report 16706141 (Version 1)
Quarter: 2019Q3

REPORT INFORMATION
  Report Type: Spontaneous
  Country: DE (occurrence: DE)
  Receive Date: 20190815
  Receipt Date: 20190815
  Transmission Date: 20191004
  Serious: Yes (Hospitalization)
  Sender: FDA-Public Use
  Company Number: DE-BAYER-2019-151062

PATIENT
  Age: 22 Year
  Sex: Female

DRUGS (1)
  1. GADOVIST [Suspect]
     Active Substance: GADOBUTROL
     Indication: SCAN WITH CONTRAST
     Dosage: 7 ML, ONCE
     Route: 042
     Dates: start: 20190813, end: 20190813

REACTIONS (4)
  - Generalised erythema [Recovering/Resolving]
  - Abdominal pain upper [Recovering/Resolving]
  - Contrast media reaction [Recovering/Resolving]
  - Urticaria [Recovering/Resolving]

NARRATIVE: CASE EVENT DATE: 20190813
